FAERS Safety Report 24393332 (Version 1)
Quarter: 2024Q4

REPORT INFORMATION
  Report Type: Spontaneous
  Country: US (occurrence: US)
  Receive Date: 20241003
  Receipt Date: 20241003
  Transmission Date: 20250115
  Serious: No
  Sender: HARMONY BIOSCIENCES
  Company Number: US-HARMONY BIOSCIENCES-2024HMY00441

PATIENT
  Age: 37 Year
  Sex: Female
  Weight: 88.889 kg

DRUGS (4)
  1. WAKIX [Suspect]
     Active Substance: PITOLISANT HYDROCHLORIDE
     Indication: Narcolepsy
     Dosage: 17.8 MG, 1X/DAY
     Route: 048
     Dates: start: 20240202, end: 20240226
  2. WAKIX [Suspect]
     Active Substance: PITOLISANT HYDROCHLORIDE
     Indication: Cataplexy
  3. VALTREX [Concomitant]
     Active Substance: VALACYCLOVIR HYDROCHLORIDE
  4. KYLEENA [Concomitant]
     Active Substance: LEVONORGESTREL

REACTIONS (3)
  - Increased appetite [Recovering/Resolving]
  - Somnolence [Recovering/Resolving]
  - Weight increased [Unknown]

NARRATIVE: CASE EVENT DATE: 20240201
